FAERS Safety Report 6508078-6 (Version None)
Quarter: 2009Q4

REPORT INFORMATION
  Report Type: 
  Country: None (occurrence: None)
  Receive Date: 20091210
  Receipt Date: 20090729
  Transmission Date: 20100525
  Serious: Yes (Hospitalization)
  Sender: FDA-Public Use
  Company Number: CIP09001342

PATIENT
  Age: 68 Year
  Sex: Female
  Weight: 76.6 kg

DRUGS (12)
  1. ACTONEL [Suspect]
     Indication: OSTEOPOROSIS
     Dosage: 150 MG ONCE MONTHLY, ORAL
     Route: 048
     Dates: start: 20090120, end: 20090529
  2. NORVASC [Suspect]
     Dosage: 10 MG DAILY
  3. IBUPROFEN [Suspect]
  4. VICODIN [Suspect]
     Dosage: 1 TABLET EVERY 4 HOURS AS NEEDED, ORAL
     Route: 048
     Dates: end: 20090622
  5. ALL OTHER NON-THERAPEUTIC PRODUCTS () [Suspect]
     Dates: start: 20090201, end: 20090201
  6. HYDROCHLOROTHIAZIDE (HYDROCHLOROTHAZIDE) [Concomitant]
  7. CITALOPRAM HYDROBROMIDE [Concomitant]
  8. SYNTHROID [Concomitant]
  9. PREVACID [Concomitant]
  10. ASPIRIN [Concomitant]
  11. CRESTOR [Concomitant]
  12. COZAAR [Concomitant]

REACTIONS (17)
  - ACCIDENTAL EXPOSURE [None]
  - BONE PAIN [None]
  - CELLULITIS [None]
  - DRUG TOXICITY [None]
  - ERYTHEMA [None]
  - FATIGUE [None]
  - IMPAIRED WORK ABILITY [None]
  - JOINT EFFUSION [None]
  - LETHARGY [None]
  - OEDEMA PERIPHERAL [None]
  - PAIN IN EXTREMITY [None]
  - PRURITUS [None]
  - PULMONARY HYPERTENSION [None]
  - RENAL FAILURE [None]
  - SKIN TIGHTNESS [None]
  - SKIN WARM [None]
  - URINE OUTPUT DECREASED [None]
